FAERS Safety Report 24609289 (Version 1)
Quarter: 2024Q4

REPORT INFORMATION
  Report Type: Spontaneous
  Country: US (occurrence: None)
  Receive Date: 20241112
  Receipt Date: 20241112
  Transmission Date: 20250114
  Serious: Yes (Other)
  Sender: Public
  Company Number: None

PATIENT
  Age: 35 Year
  Sex: Female

DRUGS (1)
  1. XELJANZ [Suspect]
     Active Substance: TOFACITINIB CITRATE
     Dates: start: 20240924, end: 20241112

REACTIONS (2)
  - Contusion [None]
  - Gingival swelling [None]

NARRATIVE: CASE EVENT DATE: 20241108
